FAERS Safety Report 6170950-7 (Version None)
Quarter: 2009Q2

REPORT INFORMATION
  Report Type: 
  Country: None (occurrence: None)
  Receive Date: 20090427
  Receipt Date: 20090427
  Transmission Date: 20091009
  Serious: Yes (Hospitalization)
  Sender: FDA-Public Use
  Company Number: None

PATIENT
  Age: 73 Year
  Sex: Female
  Weight: 61.4 kg

DRUGS (7)
  1. CITALOPRAM HYDROBROMIDE [Suspect]
     Indication: DEPRESSION
     Dosage: 10 MG PO QD
     Route: 048
  2. ALENDRONATE [Concomitant]
  3. BUPROPION HCL [Concomitant]
  4. WARFARIN [Concomitant]
  5. HYDROCHLOROTHIAZIDE [Concomitant]
  6. LISINOPRIL [Concomitant]
  7. METOPROLOL [Concomitant]

REACTIONS (3)
  - ASTHENIA [None]
  - BLOOD SODIUM DECREASED [None]
  - FALL [None]
